FAERS Safety Report 15157788 (Version 4)
Quarter: 2019Q4

REPORT INFORMATION
  Report Type: Spontaneous
  Country: US (occurrence: US)
  Receive Date: 20180718
  Receipt Date: 20191001
  Transmission Date: 20200122
  Serious: Yes (Hospitalization)
  Sender: FDA-Public Use
  Company Number: US-PFIZER INC-2018287925

PATIENT
  Age: 60 Year
  Sex: Female
  Weight: 74 kg

DRUGS (2)
  1. XELJANZ XR [Suspect]
     Active Substance: TOFACITINIB CITRATE
     Indication: RHEUMATOID ARTHRITIS
     Dosage: 11 MG, DAILY
     Route: 048
     Dates: start: 20180401
  2. XELJANZ XR [Suspect]
     Active Substance: TOFACITINIB CITRATE
     Indication: PAIN
     Dosage: 11 MG, 1X/DAY
     Dates: start: 201805

REACTIONS (7)
  - Weight increased [Unknown]
  - Blood cholesterol increased [Recovered/Resolved]
  - Ear infection [Recovered/Resolved]
  - Malaise [Recovered/Resolved]
  - White blood cell count decreased [Unknown]
  - Diarrhoea [Recovering/Resolving]
  - Eye infection [Recovered/Resolved]

NARRATIVE: CASE EVENT DATE: 2018
